FAERS Safety Report 10170704 (Version 3)
Quarter: 2014Q2

REPORT INFORMATION
  Report Type: Spontaneous
  Country: IT (occurrence: IT)
  Receive Date: 20140514
  Receipt Date: 20140610
  Transmission Date: 20141212
  Serious: Yes (Death, Hospitalization)
  Sender: FDA-Public Use
  Company Number: IT-BIOGENIDEC-2014BI041351

PATIENT
  Age: 39 Year
  Sex: Female

DRUGS (8)
  1. TYSABRI [Suspect]
     Indication: MULTIPLE SCLEROSIS
     Route: 042
     Dates: start: 20101221, end: 20130523
  2. TYSABRI [Suspect]
     Indication: MULTIPLE SCLEROSIS
     Route: 042
     Dates: start: 20140325, end: 20140325
  3. DIBASE [Concomitant]
  4. TACHIPIRINA [Concomitant]
  5. PEPTAZOL [Concomitant]
  6. PALEXIA [Concomitant]
  7. DELTACORTENE [Concomitant]
  8. CONTRAMAL [Concomitant]

REACTIONS (6)
  - Cardiac arrest [Fatal]
  - Cardiovascular disorder [Fatal]
  - Malabsorption [Unknown]
  - Pelvic fracture [Unknown]
  - Urinary tract infection [Unknown]
  - Folliculitis [Unknown]
